FAERS Safety Report 10202139 (Version 1)
Quarter: 2014Q2

REPORT INFORMATION
  Report Type: Spontaneous
  Country: US (occurrence: US)
  Receive Date: 20140528
  Receipt Date: 20140528
  Transmission Date: 20141212
  Serious: No
  Sender: FDA-Public Use
  Company Number: US-BRISTOL-MYERS SQUIBB COMPANY-19969575

PATIENT
  Age: 84 Year
  Sex: Male
  Weight: 90.7 kg

DRUGS (3)
  1. METFORMIN HCL [Suspect]
     Indication: TYPE 2 DIABETES MELLITUS
     Dosage: THERAPY DURATION:3-4 MONTHS
  2. JANUVIA [Suspect]
  3. GLYBURIDE [Suspect]

REACTIONS (1)
  - Renal disorder [Unknown]
